FAERS Safety Report 5453937-9 (Version None)
Quarter: 2007Q3

REPORT INFORMATION
  Report Type: 
  Country: None (occurrence: None)
  Receive Date: 20070917
  Receipt Date: 20070905
  Transmission Date: 20080115
  Serious: Yes (Death)
  Sender: FDA-Public Use
  Company Number: US-AMGEN-STX238328

PATIENT

DRUGS (1)
  1. ENBREL [Suspect]

REACTIONS (1)
  - DEATH [None]
